FAERS Safety Report 9401357 (Version 3)
Quarter: 2013Q3

REPORT INFORMATION
  Report Type: Spontaneous
  Country: DE (occurrence: DE)
  Receive Date: 20130715
  Receipt Date: 20130828
  Transmission Date: 20140515
  Serious: Yes (Hospitalization)
  Sender: FDA-Public Use
  Company Number: DE-BAXTER-2013BAX026625

PATIENT
  Age: 70 Year
  Sex: Female
  Weight: 67.9 kg

DRUGS (9)
  1. EXTRANEAL [Suspect]
     Indication: NEPHROSCLEROSIS
     Route: 033
  2. EXTRANEAL [Suspect]
     Indication: PERITONEAL DIALYSIS
  3. EXTRANEAL [Suspect]
     Indication: PERITONEAL DIALYSIS
  4. PHYSIONEAL 35 GLUCOSE 1,36 % W/V 13,6 MG/ML PERITONEALDIALYSEL?SUNG [Suspect]
     Indication: NEPHROSCLEROSIS
     Route: 033
  5. PHYSIONEAL 35 GLUCOSE 1,36 % W/V 13,6 MG/ML PERITONEALDIALYSEL?SUNG [Suspect]
     Indication: PERITONEAL DIALYSIS
     Route: 033
  6. PHYSIONEAL 35 GLUCOSE 1,36 % W/V 13,6 MG/ML PERITONEALDIALYSEL?SUNG [Suspect]
     Indication: PERITONEAL DIALYSIS
     Route: 033
  7. NUTRINEAL PD4 MIT 1,1% AMINOS?UREN [Suspect]
     Indication: NEPHROSCLEROSIS
     Route: 033
  8. NUTRINEAL PD4 MIT 1,1% AMINOS?UREN [Suspect]
     Indication: PERITONEAL DIALYSIS
  9. NUTRINEAL PD4 MIT 1,1% AMINOS?UREN [Suspect]
     Indication: PERITONEAL DIALYSIS

REACTIONS (3)
  - Peritonitis [Not Recovered/Not Resolved]
  - Laboratory test abnormal [Not Recovered/Not Resolved]
  - Secretion discharge [Unknown]
